FAERS Safety Report 4721449-3 (Version None)
Quarter: 2005Q3

REPORT INFORMATION
  Report Type: 
  Country: None (occurrence: None)
  Receive Date: 20050721
  Receipt Date: 20040908
  Transmission Date: 20060218
  Serious: Yes (Death, Other)
  Sender: FDA-Public Use
  Company Number: US-BRISTOL-MYERS SQUIBB COMPANY-12699203

PATIENT

DRUGS (4)
  1. COUMADIN [Suspect]
  2. CAPSAICIN [Interacting]
  3. GARLIC [Interacting]
  4. GINGER [Interacting]

REACTIONS (2)
  - DRUG INTERACTION [None]
  - HAEMORRHAGE [None]
